FAERS Safety Report 11246237 (Version 1)
Quarter: 2015Q3

REPORT INFORMATION
  Report Type: Spontaneous
  Country: US (occurrence: None)
  Receive Date: 20150706
  Receipt Date: 20150706
  Transmission Date: 20151125
  Serious: Yes (Other)
  Sender: FDA-Public Use
  Company Number: None

PATIENT
  Age: 59 Year
  Sex: Female
  Weight: 106.6 kg

DRUGS (2)
  1. PAZEO [Suspect]
     Active Substance: OLOPATADINE HYDROCHLORIDE
     Indication: CONJUNCTIVITIS ALLERGIC
     Dosage: 1 DROP, QD, OPHTHALMIC
     Route: 047
     Dates: start: 20150629, end: 20150630
  2. PAZEO [Concomitant]
     Active Substance: OLOPATADINE HYDROCHLORIDE

REACTIONS (5)
  - Visual impairment [None]
  - Eyelid oedema [None]
  - Blepharospasm [None]
  - Urticaria [None]
  - Hypersensitivity [None]

NARRATIVE: CASE EVENT DATE: 20150630
